FAERS Safety Report 7122118-5 (Version None)
Quarter: 2010Q4

REPORT INFORMATION
  Report Type: 
  Country: None (occurrence: None)
  Receive Date: 20101122
  Receipt Date: 20101122
  Transmission Date: 20110411
  Serious: Yes (Hospitalization)
  Sender: FDA-Public Use
  Company Number: None

PATIENT
  Sex: Male
  Weight: 103 kg

DRUGS (9)
  1. FLUDARABINE PHOSPHATE [Suspect]
     Dosage: 275 MG
     Dates: end: 20101105
  2. RITUXIMAB (MOAB C2B8 ANTI CD20, CHIMERIC) [Suspect]
     Dosage: 1650 MG
     Dates: end: 20101105
  3. AVAPRO [Concomitant]
  4. DETROL [Concomitant]
  5. LISINOPRIL [Concomitant]
  6. LOVASTATIN [Concomitant]
  7. MINACALCIN SPRAY [Concomitant]
  8. NORVASC [Concomitant]
  9. ZETIA [Concomitant]

REACTIONS (3)
  - HAEMOLYTIC ANAEMIA [None]
  - RENAL FAILURE [None]
  - TUMOUR LYSIS SYNDROME [None]
